FAERS Safety Report 7149500-4 (Version None)
Quarter: 2010Q4

REPORT INFORMATION
  Report Type: 
  Country: None (occurrence: None)
  Receive Date: 20101209
  Receipt Date: 20101129
  Transmission Date: 20110411
  Serious: Yes (Hospitalization)
  Sender: FDA-Public Use
  Company Number: PHHY2010IT71596

PATIENT
  Sex: Female

DRUGS (2)
  1. RASILEZ [Suspect]
     Indication: HYPERTENSION
     Dosage: 150 MG, DAILY
     Route: 048
     Dates: start: 20100401, end: 20100731
  2. DISEON [Concomitant]

REACTIONS (2)
  - PLATELET COUNT DECREASED [None]
  - THROMBOCYTOPENIA [None]
